FAERS Safety Report 5096182-1 (Version None)
Quarter: 2006Q3

REPORT INFORMATION
  Report Type: 
  Country: None (occurrence: None)
  Receive Date: 20060905
  Receipt Date: 20060809
  Transmission Date: 20061208
  Serious: Yes (Death, Life-Threatening, Hospitalization)
  Sender: FDA-Public Use
  Company Number: NL-ROCHE-458978

PATIENT
  Age: 66 Year
  Sex: Female

DRUGS (7)
  1. CAPECITABINE [Suspect]
     Dosage: ADMINISTERED ON DAYS 1-14 OF THREE WEEK CYCLE.
     Route: 048
     Dates: start: 20060501
  2. AVASTIN [Suspect]
     Route: 042
     Dates: start: 20060502
  3. OXALIPLATIN [Suspect]
     Dosage: ADMINISTERED ON DAY 1 OF 3 WEEK CYCLE.
     Route: 042
     Dates: start: 20060501
  4. OXALIPLATIN [Suspect]
     Dosage: 50% DOSE REDUCTION
     Route: 042
  5. ERBITUX [Suspect]
     Dosage: AS PER PROTOCOL - 400 MG/M2 I.V. DAY 1 OF CYCLE 1, THEREAFTER WEEKLY 250 MG/M2 I.V.
     Route: 042
     Dates: start: 20060501
  6. FUROSEMIDE [Concomitant]
  7. ALDACTONE [Concomitant]

REACTIONS (4)
  - DEHYDRATION [None]
  - DIARRHOEA [None]
  - MUCOSAL INFLAMMATION [None]
  - SEPSIS [None]
